FAERS Safety Report 11003662 (Version 2)
Quarter: 2015Q2

REPORT INFORMATION
  Report Type: Spontaneous
  Country: US (occurrence: US)
  Receive Date: 20150409
  Receipt Date: 20150423
  Transmission Date: 20150821
  Serious: Yes (Death)
  Sender: FDA-Public Use
  Company Number: US-BIOGENIDEC-2015BI044972

PATIENT
  Age: 56 Year
  Sex: Female

DRUGS (15)
  1. EFFEXOR [Concomitant]
     Active Substance: VENLAFAXINE HYDROCHLORIDE
  2. CARVEDILOL. [Concomitant]
     Active Substance: CARVEDILOL
  3. XIFAXAN [Concomitant]
     Active Substance: RIFAXIMIN
  4. ATIVAN [Concomitant]
     Active Substance: LORAZEPAM
  5. NUCYNTA [Concomitant]
     Active Substance: TAPENTADOL HYDROCHLORIDE
  6. LOVENOX [Concomitant]
     Active Substance: ENOXAPARIN SODIUM
  7. TOPAMAX [Concomitant]
     Active Substance: TOPIRAMATE
  8. ZAROXOLYN [Concomitant]
     Active Substance: METOLAZONE
  9. AVONEX [Suspect]
     Active Substance: INTERFERON BETA-1A
     Indication: MULTIPLE SCLEROSIS
     Route: 030
  10. FUROSEMIDE. [Concomitant]
     Active Substance: FUROSEMIDE
  11. METOLAZONE. [Concomitant]
     Active Substance: METOLAZONE
  12. POTASSIUM [Concomitant]
     Active Substance: POTASSIUM
  13. GAS-X EXTRA STRENGTH [Concomitant]
     Active Substance: DIMETHICONE
  14. PHENERGAN [Concomitant]
     Active Substance: PROMETHAZINE HYDROCHLORIDE
  15. LUNESTA [Concomitant]
     Active Substance: ESZOPICLONE

REACTIONS (1)
  - Death [Fatal]

NARRATIVE: CASE EVENT DATE: 20150325
